FAERS Safety Report 9685063 (Version 1)
Quarter: 2013Q4

REPORT INFORMATION
  Report Type: Spontaneous
  Country: GN (occurrence: GN)
  Receive Date: 20131113
  Receipt Date: 20131113
  Transmission Date: 20140711
  Serious: Yes (Death)
  Sender: FDA-Public Use
  Company Number: GN-PFIZER INC-2013178295

PATIENT
  Age: 5 Year
  Sex: Male

DRUGS (1)
  1. AZITHROMYCIN [Suspect]
     Indication: TRACHOMA
     Dosage: 1 DF, SINGLE
     Route: 048
     Dates: start: 20130611, end: 20130611

REACTIONS (2)
  - Asphyxia [Fatal]
  - Vomiting [Not Recovered/Not Resolved]
